FAERS Safety Report 5042276-6 (Version None)
Quarter: 2006Q2

REPORT INFORMATION
  Report Type: 
  Country: None (occurrence: None)
  Receive Date: 20060627
  Receipt Date: 20060609
  Transmission Date: 20061013
  Serious: Yes (Hospitalization)
  Sender: FDA-Public Use
  Company Number: DSA_28342_2006

PATIENT
  Age: 61 Year
  Sex: Female

DRUGS (8)
  1. DILTIAZEM HCL [Suspect]
     Indication: HYPERTENSION
     Dosage: DF
  2. VERAPAMIL [Concomitant]
  3. FUROSEMIDE [Concomitant]
  4. AMPHOTERICIN B [Concomitant]
  5. FENTANYL TRANSDERMAL SYSTEM [Concomitant]
  6. CALCIUM CARBONATE [Concomitant]
  7. THEOPHYLLINE [Concomitant]
  8. TIOTROPIUM BROMIDE [Concomitant]

REACTIONS (3)
  - ACUTE GENERALISED EXANTHEMATOUS PUSTULOSIS [None]
  - PRURITUS [None]
  - PYREXIA [None]
